FAERS Safety Report 5420740-5 (Version None)
Quarter: 2007Q3

REPORT INFORMATION
  Report Type: 
  Country: None (occurrence: None)
  Receive Date: 20070821
  Receipt Date: 20070111
  Transmission Date: 20080115
  Serious: Yes (Life-Threatening, Other)
  Sender: FDA-Public Use
  Company Number: US-BRISTOL-MYERS SQUIBB COMPANY-12338026

PATIENT
  Sex: Female

DRUGS (4)
  1. ESTRACE [Suspect]
     Indication: HORMONE REPLACEMENT THERAPY
     Dosage: FOR SEVERAL YEARS
     Dates: start: 19930101, end: 19990101
  2. PREMPHASE 14/14 [Suspect]
     Indication: HORMONE REPLACEMENT THERAPY
     Dosage: EVERYDAY FOR YEARS
     Dates: start: 19930101, end: 19990101
  3. PREMARIN [Suspect]
     Indication: HORMONE REPLACEMENT THERAPY
     Dates: start: 19930101, end: 19990101
  4. PROVERA [Suspect]
     Indication: HORMONE REPLACEMENT THERAPY
     Dates: start: 19930101, end: 19990101

REACTIONS (1)
  - BREAST CANCER [None]
